FAERS Safety Report 7423657-X (Version None)
Quarter: 2011Q2

REPORT INFORMATION
  Report Type: 
  Country: None (occurrence: None)
  Receive Date: 20110411
  Receipt Date: 20110325
  Transmission Date: 20111010
  Serious: Yes (Hospitalization)
  Sender: FDA-Public Use
  Company Number: 1000019786

PATIENT
  Age: 26 Year
  Sex: Female

DRUGS (5)
  1. OPAMOX (OXAZEPAM) [Concomitant]
  2. CITALOPRAM HYDROBROMIDE [Suspect]
     Indication: ANXIETY
     Dosage: 10 MG (10 MG, 1 IN 1 D), ORAL
     Route: 048
     Dates: start: 20110228, end: 20110404
  3. CITALOPRAM HYDROBROMIDE [Suspect]
     Indication: ANXIETY
     Dosage: 10 MG (10 MG, 1 IN 1 D), ORAL
     Route: 048
     Dates: start: 20110228, end: 20110404
  4. TRYPTOPHAN (TRYPTOPHAN) [Concomitant]
  5. PROMETHAZINE [Concomitant]

REACTIONS (7)
  - PARAESTHESIA [None]
  - MALAISE [None]
  - GENERAL PHYSICAL HEALTH DETERIORATION [None]
  - SINUSITIS [None]
  - PAIN [None]
  - INSOMNIA [None]
  - FATIGUE [None]
